FAERS Safety Report 26182252 (Version 1)
Quarter: 2025Q4

REPORT INFORMATION
  Report Type: Report from Study
  Country: IN (occurrence: IN)
  Receive Date: 20251221
  Receipt Date: 20251221
  Transmission Date: 20260118
  Serious: Yes (Death)
  Sender: ALEXION PHARMACEUTICALS
  Company Number: IN-AstraZeneca-CH-01017169A

PATIENT
  Sex: Male

DRUGS (1)
  1. OSIMERTINIB [Suspect]
     Active Substance: OSIMERTINIB
     Indication: Neoplasm malignant
     Dosage: 80 MILLIGRAM, QD
     Route: 061

REACTIONS (3)
  - Lung neoplasm malignant [Fatal]
  - Oxygen saturation decreased [Fatal]
  - Platelet count decreased [Fatal]
